FAERS Safety Report 5266461-3 (Version None)
Quarter: 2007Q1

REPORT INFORMATION
  Report Type: 
  Country: None (occurrence: None)
  Receive Date: 20070315
  Receipt Date: 20070312
  Transmission Date: 20070707
  Serious: Yes (Hospitalization)
  Sender: FDA-Public Use
  Company Number: AU-BRISTOL-MYERS SQUIBB COMPANY-13711213

PATIENT
  Age: 27 Year
  Sex: Male

DRUGS (8)
  1. BLEOMYCIN [Suspect]
     Indication: RETROPERITONEAL CANCER
     Dates: end: 20050801
  2. ETOPOSIDE [Suspect]
     Dates: end: 20050801
  3. CISPLATIN [Suspect]
     Dates: end: 20050801
  4. IFOSFAMIDE [Suspect]
     Dates: end: 20051201
  5. PACLITAXEL [Suspect]
     Dates: end: 20051201
  6. PIPERACILLIN [Concomitant]
  7. TAZOBACTAM SODIUM [Concomitant]
  8. NITROUS OXIDE W/ OXYGEN [Concomitant]

REACTIONS (2)
  - RESPIRATORY FAILURE [None]
  - SHOCK [None]
